FAERS Safety Report 6723833-5 (Version None)
Quarter: 2010Q2

REPORT INFORMATION
  Report Type: 
  Country: None (occurrence: None)
  Receive Date: 20100513
  Receipt Date: 20100303
  Transmission Date: 20101027
  Serious: No
  Sender: FDA-Public Use
  Company Number: A0857708A

PATIENT
  Sex: Female

DRUGS (1)
  1. TREXIMET [Suspect]
     Route: 048

REACTIONS (3)
  - ADVERSE EVENT [None]
  - CHEST DISCOMFORT [None]
  - TENSION HEADACHE [None]
